FAERS Safety Report 15028230 (Version 1)
Quarter: 2018Q2

REPORT INFORMATION
  Report Type: Spontaneous
  Country: US (occurrence: US)
  Receive Date: 20180619
  Receipt Date: 20180619
  Transmission Date: 20180711
  Serious: Yes (Hospitalization)
  Sender: FDA-Public Use
  Company Number: US-ELI_LILLY_AND_COMPANY-US201806004428

PATIENT
  Age: 48 Year
  Sex: Female

DRUGS (4)
  1. TRADJENTA [Interacting]
     Active Substance: LINAGLIPTIN
     Indication: PRODUCT USED FOR UNKNOWN INDICATION
     Dosage: UNK, UNKNOWN
     Route: 065
     Dates: start: 20180601, end: 20180601
  2. METFORMIN [Concomitant]
     Active Substance: METFORMIN HYDROCHLORIDE
     Indication: PRODUCT USED FOR UNKNOWN INDICATION
     Dosage: 1000 MG, UNKNOWN
  3. TRULICITY [Suspect]
     Active Substance: DULAGLUTIDE
     Indication: PRODUCT USED FOR UNKNOWN INDICATION
     Dosage: UNK UNK, UNKNOWN
     Route: 065
     Dates: start: 2014, end: 201605
  4. TRULICITY [Interacting]
     Active Substance: DULAGLUTIDE
     Dosage: UNK
     Route: 065
     Dates: start: 20180601, end: 20180601

REACTIONS (5)
  - Dizziness [Recovered/Resolved]
  - Blood ketone body present [Recovered/Resolved]
  - Blood glucose increased [Recovered/Resolved]
  - Nausea [Recovered/Resolved]
  - Drug interaction [Recovered/Resolved]

NARRATIVE: CASE EVENT DATE: 20180601
